FAERS Safety Report 22043088 (Version 3)
Quarter: 2023Q1

REPORT INFORMATION
  Report Type: Spontaneous
  Country: US (occurrence: US)
  Receive Date: 20230228
  Receipt Date: 20230324
  Transmission Date: 20230418
  Serious: Yes (Hospitalization, Other)
  Sender: FDA-Public Use
  Company Number: US-EXELIXIS-CABO-23059765

PATIENT
  Age: 54 Year
  Sex: Female
  Weight: 110.98 kg

DRUGS (4)
  1. OPDIVO [Suspect]
     Active Substance: NIVOLUMAB
     Indication: Renal cancer
  2. CABOMETYX [Suspect]
     Active Substance: CABOZANTINIB S-MALATE
     Indication: Renal cancer
     Dosage: 40 MG, QD (2 TABLET OF 20 MG)
     Route: 048
     Dates: start: 20221222, end: 202301
  3. CABOMETYX [Suspect]
     Active Substance: CABOZANTINIB S-MALATE
     Dosage: 40 MG, QD (2 TABLET OF 20 MG)
     Route: 048
  4. CABOMETYX [Suspect]
     Active Substance: CABOZANTINIB S-MALATE
     Dosage: 40 MG, QD (2 TABLET OF 20 MG)
     Route: 048

REACTIONS (12)
  - Thrombotic stroke [Recovered/Resolved]
  - Acidosis [Unknown]
  - Laboratory test abnormal [Unknown]
  - Liver function test increased [Unknown]
  - Blood pressure decreased [Recovered/Resolved]
  - Constipation [Unknown]
  - Therapeutic response unexpected [Not Recovered/Not Resolved]
  - Blood urea increased [Unknown]
  - Blood creatinine increased [Unknown]
  - Blood pressure increased [Unknown]
  - Body temperature increased [Recovering/Resolving]
  - Chills [Recovering/Resolving]

NARRATIVE: CASE EVENT DATE: 20230201
